FAERS Safety Report 18941462 (Version 8)
Quarter: 2021Q3

REPORT INFORMATION
  Report Type: Report from Study
  Country: GB (occurrence: GB)
  Receive Date: 20210225
  Receipt Date: 20210928
  Transmission Date: 20211014
  Serious: Yes (Hospitalization, Other)
  Sender: FDA-Public Use
  Company Number: GB-TAKEDA-2021TUS009776

PATIENT
  Age: 71 Year
  Sex: Male
  Weight: 83 kg

DRUGS (53)
  1. ATORVASTATINE ACCORD [Concomitant]
     Active Substance: ATORVASTATIN
     Indication: BLOOD CHOLESTEROL INCREASED
     Dosage: UNK
     Route: 065
     Dates: start: 20190807
  2. ATORVASTATINE ACCORD [Concomitant]
     Active Substance: ATORVASTATIN
     Dosage: 20 MILLIGRAM, QD
     Route: 048
  3. OMEPRAZOLE. [Concomitant]
     Active Substance: OMEPRAZOLE
     Dosage: 20 MILLIGRAM, QD
     Route: 048
  4. TRANEXAMIC [Concomitant]
     Active Substance: TRANEXAMIC ACID
     Dosage: 1 GRAM, TID
     Route: 048
     Dates: start: 20190806
  5. COTRIMOXAZOLE [Concomitant]
     Active Substance: SULFAMETHOXAZOLE\TRIMETHOPRIM
     Dosage: 480 MILLIGRAM, QD
     Route: 048
     Dates: start: 20191023, end: 20191112
  6. DALTEPARIN [Concomitant]
     Active Substance: DALTEPARIN
     Indication: PROPHYLAXIS
     Dosage: 5000 INTERNATIONAL UNIT, QD
     Route: 058
     Dates: start: 20200207, end: 20200211
  7. DALTEPARIN [Concomitant]
     Active Substance: DALTEPARIN
     Dosage: 5000 INTERNATIONAL UNIT, QD
     Route: 058
     Dates: start: 20191021, end: 20191107
  8. NYSTATIN. [Concomitant]
     Active Substance: NYSTATIN
     Indication: ORAL CANDIDIASIS
     Dosage: 1333.3 INTERNATIONAL UNIT/KILOGRAM, QID
     Route: 048
     Dates: start: 20191106, end: 20191113
  9. TRANEXAMIC [Concomitant]
     Active Substance: TRANEXAMIC ACID
     Indication: HAEMORRHAGE
     Dosage: 1000 MILLIGRAM, QD
     Route: 048
     Dates: start: 20190826, end: 20191108
  10. RITUXIMAB. [Concomitant]
     Active Substance: RITUXIMAB
     Indication: RHEUMATOID ARTHRITIS
     Dosage: 1000 MILLIGRAM
     Route: 042
     Dates: start: 20191231, end: 20191231
  11. CO?AMOXICLAV [Concomitant]
     Active Substance: AMOXICILLIN\CLAVULANATE POTASSIUM
     Indication: PNEUMONIA
     Dosage: UNK UNK, TID
     Route: 048
     Dates: start: 20200212, end: 20200219
  12. CEFTRIAXONE. [Concomitant]
     Active Substance: CEFTRIAXONE
     Indication: LISTERIOSIS
     Dosage: 2000 MILLIGRAM, BID
     Route: 042
     Dates: start: 20191019, end: 20191020
  13. SANDO K [Concomitant]
     Indication: ELECTROLYTE IMBALANCE
     Dosage: 1000 MILLIGRAM, TID
     Route: 048
     Dates: start: 20191025, end: 20191027
  14. SANDO K [Concomitant]
     Dosage: 2 DOSAGE FORM, TID
     Route: 048
     Dates: start: 20190812, end: 20191027
  15. PARACETAMOL [Concomitant]
     Active Substance: ACETAMINOPHEN
     Indication: ANALGESIC THERAPY
     Dosage: 1000 MILLIGRAM
     Route: 048
     Dates: start: 20191018, end: 20191018
  16. HARTMANN^S [Concomitant]
     Active Substance: CALCIUM CHLORIDE\POTASSIUM CHLORIDE\SODIUM CHLORIDE\SODIUM LACTATE
     Indication: FLUID REPLACEMENT
     Dosage: 500 MILLILITER, QD
     Route: 042
     Dates: start: 20191018, end: 20191018
  17. OMEPRAZOLE. [Concomitant]
     Active Substance: OMEPRAZOLE
     Dosage: UNK
     Route: 065
     Dates: start: 20190807
  18. SULFASALAZINE. [Concomitant]
     Active Substance: SULFASALAZINE
     Dosage: 1000 MILLIGRAM, QD
     Route: 048
     Dates: start: 20191213
  19. SULFASALAZINE. [Concomitant]
     Active Substance: SULFASALAZINE
     Dosage: 500 MILLIGRAM, QD
     Route: 048
     Dates: start: 20191206, end: 20191212
  20. COAGULATION FACTOR VIII (PORCINE, RECOMBINANT) [Suspect]
     Active Substance: ANTIHEMOPHILIC FACTOR PORCINE, B-DOMAIN TRUNCATED RECOMBINANT
     Indication: FACTOR VIII DEFICIENCY
     Dosage: 74 INTERNATIONAL UNIT/KILOGRAM
     Route: 042
  21. AMLODIPINE [Concomitant]
     Active Substance: AMLODIPINE BESYLATE
     Indication: BLOOD PRESSURE INCREASED
     Dosage: 10 MILLIGRAM, QD
     Route: 048
     Dates: start: 20190809
  22. AMLODIPINE [Concomitant]
     Active Substance: AMLODIPINE BESYLATE
     Indication: HYPERTENSION
     Dosage: 5 MILLIGRAM, QD
     Route: 048
     Dates: start: 20190809
  23. CEFTRIAXONE. [Concomitant]
     Active Substance: CEFTRIAXONE
     Indication: PNEUMONIA
     Dosage: 2000 MILLIGRAM, QD
     Route: 042
     Dates: start: 20200203, end: 20200204
  24. GENTAMICIN. [Concomitant]
     Active Substance: GENTAMICIN
     Indication: LISTERIA SEPSIS
     Dosage: 260 MILLIGRAM, QD
     Route: 042
     Dates: start: 20191021, end: 20191021
  25. AMOXICILLIN. [Concomitant]
     Active Substance: AMOXICILLIN
     Indication: LISTERIOSIS
     Dosage: 2000 MILLIGRAM
     Route: 042
     Dates: start: 20191021, end: 20191108
  26. AMOXICILLIN. [Concomitant]
     Active Substance: AMOXICILLIN
     Dosage: 1000 MILLIGRAM, QID
     Route: 042
     Dates: start: 20191019, end: 20191020
  27. COAGULATION FACTOR VIII (PORCINE, RECOMBINANT) [Suspect]
     Active Substance: ANTIHEMOPHILIC FACTOR PORCINE, B-DOMAIN TRUNCATED RECOMBINANT
     Dosage: 36 INTERNATIONAL UNIT/KILOGRAM
     Route: 042
  28. COTRIMOXAZOLE [Concomitant]
     Active Substance: SULFAMETHOXAZOLE\TRIMETHOPRIM
     Indication: PROPHYLAXIS
     Dosage: 480 MILLIGRAM, 3/WEEK
     Route: 048
     Dates: start: 20191218, end: 20200311
  29. RITUXIMAB. [Concomitant]
     Active Substance: RITUXIMAB
     Dosage: 1000 MILLIGRAM, QD
     Route: 042
     Dates: start: 20191217, end: 20191217
  30. FLUCONAZOLE. [Concomitant]
     Active Substance: FLUCONAZOLE
     Indication: ATYPICAL PNEUMONIA
     Dosage: 100 MILLIGRAM, QD
     Route: 048
     Dates: start: 20200204, end: 20200211
  31. GENTAMICIN. [Concomitant]
     Active Substance: GENTAMICIN
     Dosage: 320 MILLIGRAM
     Route: 042
     Dates: start: 20191019, end: 20191019
  32. PIPERACILLIN AND TAZOBACTAM [Concomitant]
     Active Substance: PIPERACILLIN SODIUM\TAZOBACTAM SODIUM
     Indication: SEPSIS
     Dosage: 4.5 GRAM, BID
     Route: 042
     Dates: start: 20191018, end: 20191018
  33. COAGULATION FACTOR VIII (PORCINE, RECOMBINANT) [Suspect]
     Active Substance: ANTIHEMOPHILIC FACTOR PORCINE, B-DOMAIN TRUNCATED RECOMBINANT
     Dosage: 98 INTERNATIONAL UNIT/KILOGRAM
     Route: 042
  34. COAGULATION FACTOR VIII (PORCINE, RECOMBINANT) [Suspect]
     Active Substance: ANTIHEMOPHILIC FACTOR PORCINE, B-DOMAIN TRUNCATED RECOMBINANT
     Dosage: 36 INTERNATIONAL UNIT/KILOGRAM
     Route: 042
  35. CETRIZINE [Concomitant]
     Active Substance: CETIRIZINE HYDROCHLORIDE
     Indication: SEASONAL ALLERGY
     Dosage: 10 MILLIGRAM, QD
     Route: 048
     Dates: start: 20190807
  36. METHYLPREDNISOLONE. [Concomitant]
     Active Substance: METHYLPREDNISOLONE
     Indication: RHEUMATOID ARTHRITIS
     Dosage: 100 MILLIGRAM
     Route: 042
     Dates: start: 20191231, end: 20191231
  37. SULFASALAZINE. [Concomitant]
     Active Substance: SULFASALAZINE
     Indication: RHEUMATOID ARTHRITIS
     Dosage: 1000 MILLIGRAM, BID
     Route: 048
     Dates: start: 20191227
  38. SULFASALAZINE. [Concomitant]
     Active Substance: SULFASALAZINE
     Dosage: 750 MILLIGRAM, BID
     Route: 048
     Dates: start: 20191220, end: 20191226
  39. DOXYCYCLINE. [Concomitant]
     Active Substance: DOXYCYCLINE
     Indication: LOWER RESPIRATORY TRACT INFECTION
     Dosage: 100 MILLIGRAM, BID
     Route: 048
     Dates: start: 20200203, end: 20200207
  40. PARACETAMOL [Concomitant]
     Active Substance: ACETAMINOPHEN
     Dosage: 1000 MILLIGRAM, PRN
     Route: 048
     Dates: start: 20190807, end: 20190821
  41. COAGULATION FACTOR VIII (PORCINE, RECOMBINANT) [Suspect]
     Active Substance: ANTIHEMOPHILIC FACTOR PORCINE, B-DOMAIN TRUNCATED RECOMBINANT
     Indication: FACTOR VIII DEFICIENCY
     Dosage: 74 INTERNATIONAL UNIT/KILOGRAM
     Route: 042
  42. ALENDRONIC ACID [Concomitant]
     Active Substance: ALENDRONIC ACID
     Dosage: 70 MILLIGRAM, 1/WEEK
     Route: 048
     Dates: start: 201908
  43. CALCEOS [Concomitant]
     Active Substance: CALCIUM CARBONATE\CHOLECALCIFEROL
     Dosage: 500 MILLIGRAM, BID
     Route: 048
     Dates: start: 20190819
  44. PREDNISOLONE. [Concomitant]
     Active Substance: PREDNISOLONE
     Dosage: 10 MILLIGRAM, QD
     Route: 048
     Dates: start: 20191206
  45. METHYLPREDNISOLONE. [Concomitant]
     Active Substance: METHYLPREDNISOLONE
     Dosage: 100 MILLIGRAM
     Route: 042
     Dates: start: 20191217, end: 20191217
  46. FERROUS FUMARATE [Concomitant]
     Active Substance: FERROUS FUMARATE
     Indication: HAEMOGLOBIN DECREASED
     Dosage: 210 MILLIGRAM, QD
     Route: 048
     Dates: start: 20190809
  47. COAGULATION FACTOR VIII (PORCINE, RECOMBINANT) [Suspect]
     Active Substance: ANTIHEMOPHILIC FACTOR PORCINE, B-DOMAIN TRUNCATED RECOMBINANT
     Dosage: 98 INTERNATIONAL UNIT/KILOGRAM
     Route: 042
  48. CALCEOS [Concomitant]
     Active Substance: CALCIUM CARBONATE\CHOLECALCIFEROL
     Indication: ELECTROLYTE IMBALANCE
     Dosage: UNK
     Dates: start: 20190807
  49. PREDNISOLONE. [Concomitant]
     Active Substance: PREDNISOLONE
     Indication: FACTOR VIII INHIBITION
     Dosage: 80 MILLIGRAM, QD
     Route: 048
     Dates: end: 20191202
  50. TRANEXAMIC [Concomitant]
     Active Substance: TRANEXAMIC ACID
     Dosage: 1000 MILLIGRAM, QD
     Route: 048
     Dates: start: 20191020, end: 20191020
  51. CO?AMOXICLAV [Concomitant]
     Active Substance: AMOXICILLIN\CLAVULANATE POTASSIUM
     Dosage: 1200 MILLIGRAM, TID
     Route: 042
     Dates: start: 20200207, end: 20200212
  52. PARACETAMOL [Concomitant]
     Active Substance: ACETAMINOPHEN
     Dosage: 1000 MILLIGRAM
     Route: 048
     Dates: start: 20191019
  53. SODIUM CHLORIDE. [Concomitant]
     Active Substance: SODIUM CHLORIDE
     Indication: ELECTROLYTE IMBALANCE
     Dosage: 500 MILLILITER, PRN
     Route: 042
     Dates: start: 20190807, end: 20190807

REACTIONS (9)
  - Haemorrhage [Recovered/Resolved]
  - Inhibiting antibodies [Recovered/Resolved]
  - Lower respiratory tract infection [Recovered/Resolved]
  - Pneumonia [Recovered/Resolved]
  - Paraesthesia [Unknown]
  - Listeraemia [Recovered/Resolved]
  - Anaemia [Recovered/Resolved]
  - Swelling face [Unknown]
  - Hypoaesthesia [Unknown]

NARRATIVE: CASE EVENT DATE: 20190723
